FAERS Safety Report 12664342 (Version 2)
Quarter: 2016Q3

REPORT INFORMATION
  Report Type: Spontaneous
  Country: US (occurrence: US)
  Receive Date: 20160818
  Receipt Date: 20160920
  Transmission Date: 20161109
  Serious: Yes (Other)
  Sender: FDA-Public Use
  Company Number: US-JNJFOC-20160811050

PATIENT
  Age: 59 Year
  Sex: Female
  Weight: 83.92 kg

DRUGS (1)
  1. DURAGESIC [Suspect]
     Active Substance: FENTANYL
     Indication: PAIN MANAGEMENT
     Route: 062

REACTIONS (11)
  - Medical device implantation [Unknown]
  - Withdrawal syndrome [Not Recovered/Not Resolved]
  - Product adhesion issue [Unknown]
  - Gallbladder operation [Unknown]
  - Type 2 diabetes mellitus [Unknown]
  - Rotator cuff repair [Unknown]
  - Wrong technique in product usage process [Unknown]
  - Amnesia [Not Recovered/Not Resolved]
  - Ligament operation [Unknown]
  - Spinal osteoarthritis [Not Recovered/Not Resolved]
  - Hypertension [Unknown]

NARRATIVE: CASE EVENT DATE: 2009
